FAERS Safety Report 6687004-3 (Version None)
Quarter: 2010Q2

REPORT INFORMATION
  Report Type: 
  Country: None (occurrence: None)
  Receive Date: 20100419
  Receipt Date: 20100407
  Transmission Date: 20101027
  Serious: Yes (Other)
  Sender: FDA-Public Use
  Company Number: TR-PFIZER INC-2010043738

PATIENT
  Age: 23 Year
  Sex: Female

DRUGS (4)
  1. PREDNISOLONE [Suspect]
     Dosage: UNK
  2. ENBREL [Suspect]
     Dosage: 25 MG, UNK
  3. METHOTREXAT [Concomitant]
     Dosage: UNK
  4. ARAVA [Concomitant]
     Dosage: 20 MG, 1X/DAY

REACTIONS (1)
  - DEEP VEIN THROMBOSIS [None]
